FAERS Safety Report 19302428 (Version 1)
Quarter: 2021Q2

REPORT INFORMATION
  Report Type: Other
  Country: US (occurrence: US)
  Receive Date: 20210525
  Receipt Date: 20210525
  Transmission Date: 20210717
  Serious: No
  Sender: FDA-Public Use
  Company Number: US-ROCHE-2833780

PATIENT
  Sex: Male

DRUGS (1)
  1. OCREVUS [Suspect]
     Active Substance: OCRELIZUMAB
     Indication: MULTIPLE SCLEROSIS
     Dosage: INFUSE 300 MG DAY 1 DAY 15, THEN 600 MG ONCE IN 6 MONTHS?07/NOV/2019, 08/APR/2020, 08/MAY/2020, 09/N
     Route: 042
     Dates: start: 20191024

REACTIONS (1)
  - COVID-19 [Not Recovered/Not Resolved]
